FAERS Safety Report 5483833-2 (Version None)
Quarter: 2007Q4

REPORT INFORMATION
  Report Type: 
  Country: None (occurrence: None)
  Receive Date: 20071012
  Receipt Date: 20071002
  Transmission Date: 20080405
  Serious: Yes (Hospitalization)
  Sender: FDA-Public Use
  Company Number: ES-JNJFOC-20071000955

PATIENT
  Age: 69 Year
  Sex: Female
  Weight: 82 kg

DRUGS (10)
  1. CAPECITABINE [Suspect]
     Indication: BREAST CANCER METASTATIC
     Dosage: 1250MG/M2 EVERY 12 HOURS
     Route: 048
  2. CAPECITABINE [Suspect]
     Dosage: 1250MG/M2 EVERY 12 HOURS
     Route: 048
  3. LOPERAMIDE HCL [Suspect]
     Indication: DIARRHOEA
     Route: 065
  4. PARACETAMOL [Concomitant]
     Indication: BONE PAIN
     Route: 048
  5. LEVOTIROXINA [Concomitant]
     Indication: HYPOTHYROIDISM
     Route: 048
  6. OMEPRAZOLE [Concomitant]
     Indication: GASTRIC DISORDER
     Route: 048
  7. LISINOPRIL [Concomitant]
     Indication: HYPERTENSION
     Route: 048
  8. INSULINE [Concomitant]
     Indication: DIABETES MELLITUS
     Route: 042
  9. ZOLEDRONIC ACID [Concomitant]
     Indication: METASTASES TO BONE
     Route: 042
  10. CLONAZEPAM [Concomitant]
     Indication: INSOMNIA
     Route: 048

REACTIONS (5)
  - ANOREXIA [None]
  - ASTHENIA [None]
  - DIARRHOEA [None]
  - DRUG INEFFECTIVE [None]
  - MUCOSAL INFLAMMATION [None]
